FAERS Safety Report 8012859-X (Version None)
Quarter: 2011Q4

REPORT INFORMATION
  Report Type: 
  Country: None (occurrence: None)
  Receive Date: 20111229
  Receipt Date: 20111221
  Transmission Date: 20120403
  Serious: Yes (Other)
  Sender: FDA-Public Use
  Company Number: ES-BRISTOL-MYERS SQUIBB COMPANY-16310617

PATIENT
  Age: 62 Year
  Sex: Male

DRUGS (3)
  1. METFORMIN HCL [Concomitant]
  2. ONGLYZA [Suspect]
  3. ATORVASTATIN [Concomitant]

REACTIONS (1)
  - FOOD POISONING [None]
